FAERS Safety Report 9604361 (Version 14)
Quarter: 2015Q4

REPORT INFORMATION
  Report Type: Report from Study
  Country: CA (occurrence: CA)
  Receive Date: 20131008
  Receipt Date: 20151214
  Transmission Date: 20160305
  Serious: Yes (Hospitalization, Other)
  Sender: FDA-Public Use
  Company Number: PHHY2013CA111581

PATIENT
  Age: 84 Year
  Sex: Female

DRUGS (1)
  1. SANDOSTATIN LAR DEPOT [Suspect]
     Active Substance: OCTREOTIDE ACETATE
     Indication: CARCINOID TUMOUR
     Dosage: 30 MG, QMO (EVERY 4 WEEKS)
     Route: 030
     Dates: start: 20051006

REACTIONS (6)
  - Heart rate decreased [Unknown]
  - Blood pressure increased [Unknown]
  - Hip fracture [Unknown]
  - Body temperature decreased [Unknown]
  - Arrhythmia [Unknown]
  - Fall [Unknown]

NARRATIVE: CASE EVENT DATE: 20140101
